FAERS Safety Report 9535086 (Version 1)
Quarter: 2013Q3

REPORT INFORMATION
  Report Type: Spontaneous
  Country: EE (occurrence: EE)
  Receive Date: 20130918
  Receipt Date: 20130918
  Transmission Date: 20140515
  Serious: Yes (Hospitalization, Other)
  Sender: FDA-Public Use
  Company Number: EE-B.I. PHARMACEUTICALS,INC./RIDGEFIELD-2013-BI-28704EA

PATIENT
  Age: 77 Year
  Sex: Male

DRUGS (1)
  1. MICARDIS PLUS [Suspect]
     Indication: HYPERTENSION
     Dosage: DOSE PER APPLICATION AND DAILY DOSE: 80/25 MG
     Route: 048
     Dates: start: 201306, end: 20130811

REACTIONS (1)
  - Cerebrovascular accident [Not Recovered/Not Resolved]
